FAERS Safety Report 17659216 (Version 2)
Quarter: 2020Q2

REPORT INFORMATION
  Report Type: Spontaneous
  Country: IL (occurrence: IL)
  Receive Date: 20200413
  Receipt Date: 20200429
  Transmission Date: 20200713
  Serious: Yes (Death, Hospitalization, Other)
  Sender: FDA-Public Use
  Company Number: IL-BRISTOL-MYERS SQUIBB COMPANY-BMS-2020-030279

PATIENT
  Age: 84 Year
  Sex: Female
  Weight: 76 kg

DRUGS (1)
  1. ELIQUIS [Suspect]
     Active Substance: APIXABAN
     Indication: CEREBROVASCULAR ACCIDENT PROPHYLAXIS
     Dosage: 2.5 MILLIGRAM, BID
     Route: 065

REACTIONS (5)
  - Melaena [Unknown]
  - Upper gastrointestinal haemorrhage [Unknown]
  - Rectal haemorrhage [Unknown]
  - Urosepsis [Fatal]
  - Mouth haemorrhage [Unknown]
